FAERS Safety Report 6866813-1 (Version None)
Quarter: 2010Q2

REPORT INFORMATION
  Report Type: 
  Country: None (occurrence: None)
  Receive Date: 20100528
  Receipt Date: 20100407
  Transmission Date: 20101027
  Serious: No
  Sender: FDA-Public Use
  Company Number: 2010044213

PATIENT
  Age: 81 Year
  Sex: Female
  Weight: 61.2 kg

DRUGS (3)
  1. TOVIAZ [Suspect]
     Indication: URINARY INCONTINENCE
     Dosage: 8 MG, 1X/DAY, DAILY DOSE: 8 MG, ORAL
     Route: 048
     Dates: start: 20100406
  2. IRON (IRON) [Concomitant]
  3. SYNTHROID [Concomitant]

REACTIONS (2)
  - DRUG INEFFECTIVE [None]
  - DYSURIA [None]
